FAERS Safety Report 5125289-5 (Version None)
Quarter: 2006Q4

REPORT INFORMATION
  Report Type: 
  Country: None (occurrence: None)
  Receive Date: 20061006
  Receipt Date: 20060923
  Transmission Date: 20070319
  Serious: Yes (Other)
  Sender: FDA-Public Use
  Company Number: 2006117229

PATIENT
  Age: 54 Year
  Sex: Female
  Weight: 102.5129 kg

DRUGS (4)
  1. CHANTIX [Suspect]
     Indication: NICOTINE DEPENDENCE
     Dates: start: 20060720
  2. ZYRTEC [Suspect]
     Dosage: 10 MG (10 MG, 1 IN 1 D)
     Dates: start: 20040101
  3. ADVAIR DISKUS 100/50 [Concomitant]
  4. ALBUTEROL [Concomitant]

REACTIONS (3)
  - PRURITUS [None]
  - RASH [None]
  - SKIN EXFOLIATION [None]
